FAERS Safety Report 26011045 (Version 1)
Quarter: 2025Q4

REPORT INFORMATION
  Report Type: Spontaneous
  Country: EU (occurrence: EU)
  Receive Date: 20251107
  Receipt Date: 20251107
  Transmission Date: 20260117
  Serious: Yes (Hospitalization, Other)
  Sender: CHEPLAPHARM
  Company Number: None

PATIENT
  Age: 76 Year
  Sex: Male

DRUGS (16)
  1. CLONAZEPAM [Suspect]
     Active Substance: CLONAZEPAM
     Indication: Post herpetic neuralgia
     Dosage: DAILY DOSE: 0.5 MILLIGRAM
     Route: 048
     Dates: start: 20251002, end: 20251004
  2. ESLICARBAZEPINE ACETATE [Suspect]
     Active Substance: ESLICARBAZEPINE ACETATE
     Indication: Post herpetic neuralgia
     Dosage: DAILY DOSE: 400 MILLIGRAM
     Route: 048
     Dates: start: 20251002, end: 20251004
  3. ACETAMINOPHEN [Concomitant]
     Active Substance: ACETAMINOPHEN
  4. DIGOXIN [Concomitant]
     Active Substance: DIGOXIN
  5. SITAGLIPTIN [Concomitant]
     Active Substance: SITAGLIPTIN
  6. LEVOTHYROXINE SODIUM [Concomitant]
     Active Substance: LEVOTHYROXINE SODIUM
  7. Alzil plus [Concomitant]
     Dosage: FILM-COATED TABLETS
  8. BISOPROLOL [Concomitant]
     Active Substance: BISOPROLOL
  9. ENTRESTO [Concomitant]
     Active Substance: SACUBITRIL\VALSARTAN
     Dosage: FILM-COATED TABLETS
  10. TOVIAZ [Concomitant]
     Active Substance: FESOTERODINE FUMARATE
     Dosage: TOVIAZ 8 MG EXTENDED-RELEASE TABLETS
  11. NEXIUM [Concomitant]
     Active Substance: ESOMEPRAZOLE MAGNESIUM
  12. ELIQUIS [Concomitant]
     Active Substance: APIXABAN
     Dosage: FILM-COATED TABLET
  13. TAMSULOSIN HYDROCHLORIDE [Concomitant]
     Active Substance: TAMSULOSIN HYDROCHLORIDE
  14. ESCITALOPRAM OXALATE [Concomitant]
     Active Substance: ESCITALOPRAM OXALATE
     Dosage: FILM-COATED TABLETS EFG
  15. TRAMADOL [Concomitant]
     Active Substance: TRAMADOL
  16. CITICOLINE [Concomitant]
     Active Substance: CITICOLINE

REACTIONS (5)
  - Lumbar vertebral fracture [Unknown]
  - Craniocerebral injury [Unknown]
  - Disorientation [Unknown]
  - Fall [Unknown]
  - Off label use [Recovered/Resolved]

NARRATIVE: CASE EVENT DATE: 20251002
